FAERS Safety Report 9058999 (Version 1)
Quarter: 2013Q1

REPORT INFORMATION
  Report Type: Spontaneous
  Country: US (occurrence: US)
  Receive Date: 20130211
  Receipt Date: 20130211
  Transmission Date: 20140127
  Serious: No
  Sender: FDA-Public Use
  Company Number: US-BRISTOL-MYERS SQUIBB COMPANY-16505158

PATIENT
  Sex: Male

DRUGS (1)
  1. METFORMIN HCL [Suspect]

REACTIONS (1)
  - Abdominal discomfort [Unknown]
